FAERS Safety Report 23250223 (Version 6)
Quarter: 2024Q4

REPORT INFORMATION
  Report Type: Report from Study
  Country: US (occurrence: US)
  Receive Date: 20231201
  Receipt Date: 20241106
  Transmission Date: 20250115
  Serious: Yes (Hospitalization)
  Sender: PUMA
  Company Number: US-PUMA BIOTECHNOLOGY, LTD.-2023-PUM-US001685

PATIENT

DRUGS (5)
  1. NERLYNX [Suspect]
     Active Substance: NERATINIB
     Indication: Breast cancer female
     Dosage: 3 TABLETS ( 120MG),DAILY
     Route: 048
     Dates: start: 202309, end: 20231008
  2. NERLYNX [Suspect]
     Active Substance: NERATINIB
     Dosage: 4 TABLETS (160MG),DAILY
     Route: 048
     Dates: start: 20231009, end: 2023
  3. NERLYNX [Suspect]
     Active Substance: NERATINIB
     Dosage: 6 TABLETS (240MG),DAILY
     Route: 048
     Dates: start: 2023, end: 2023
  4. NERLYNX [Suspect]
     Active Substance: NERATINIB
     Dosage: 3 TABLETS (120MG),DAILY
     Route: 048
     Dates: start: 20240314, end: 2024
  5. NERLYNX [Suspect]
     Active Substance: NERATINIB
     Dosage: 4 TABLETS (160MG), DAILY
     Route: 048
     Dates: start: 2024

REACTIONS (10)
  - Blood potassium decreased [Recovered/Resolved]
  - Dyspnoea [Unknown]
  - Diarrhoea [Recovered/Resolved]
  - Lip dry [Unknown]
  - Nasal dryness [Unknown]
  - Fatigue [Not Recovered/Not Resolved]
  - Muscle spasms [Not Recovered/Not Resolved]
  - Onychoclasis [Unknown]
  - Drug titration [Unknown]
  - Product dose omission issue [Unknown]

NARRATIVE: CASE EVENT DATE: 20231001
